FAERS Safety Report 8132070-1 (Version None)
Quarter: 2012Q1

REPORT INFORMATION
  Report Type: 
  Country: None (occurrence: None)
  Receive Date: 20120213
  Receipt Date: 20120208
  Transmission Date: 20120608
  Serious: Yes (Hospitalization)
  Sender: FDA-Public Use
  Company Number: FR-PFIZER INC-2008034083

PATIENT
  Age: 32 Year
  Sex: Male

DRUGS (12)
  1. TAMOXIFEN CITRATE [Suspect]
     Dosage: 20 MG, DAILY
     Route: 048
     Dates: start: 20080209, end: 20080303
  2. EPOETIN BETA [Concomitant]
     Route: 058
     Dates: start: 20030901, end: 20080101
  3. RENAGEL [Concomitant]
  4. IMIPENEM AND CILASTATIN SODIUM [Suspect]
     Dates: start: 20080130, end: 20080219
  5. FOLIC ACID [Concomitant]
  6. OFLOXACIN [Suspect]
     Route: 048
     Dates: start: 20080125, end: 20080127
  7. AMLODIPINE BESYLATE [Suspect]
     Route: 048
  8. CALCIDIA [Concomitant]
  9. RAMIPRIL [Suspect]
     Route: 048
  10. KAYEXALATE [Concomitant]
  11. ATENOLOL [Suspect]
     Route: 048
  12. VANCOMYCIN [Suspect]
     Dates: start: 20080127, end: 20080219

REACTIONS (2)
  - PERITONITIS SCLEROSING [None]
  - APLASTIC ANAEMIA [None]
